FAERS Safety Report 13228373 (Version 1)
Quarter: 2017Q1

REPORT INFORMATION
  Report Type: Spontaneous
  Country: US (occurrence: US)
  Receive Date: 20170213
  Receipt Date: 20170213
  Transmission Date: 20170428
  Serious: No
  Sender: FDA-Public Use
  Company Number: US-ROCHE-1865268

PATIENT
  Sex: Female
  Weight: 117.59 kg

DRUGS (3)
  1. XOPENEX [Concomitant]
     Active Substance: LEVALBUTEROL HYDROCHLORIDE
     Indication: ASTHMA
     Dosage: INHALER ;ONGOING: YES
     Route: 055
  2. XOLAIR [Suspect]
     Active Substance: OMALIZUMAB
     Indication: ASTHMA
     Dosage: 1 SHOT EACH ARM ONCE A MONTH
     Route: 065
     Dates: start: 201605
  3. ADVAIR HFA [Concomitant]
     Active Substance: FLUTICASONE PROPIONATE\SALMETEROL XINAFOATE
     Indication: ASTHMA
     Route: 055

REACTIONS (1)
  - Blood pressure increased [Unknown]
